FAERS Safety Report 7380440-1 (Version None)
Quarter: 2011Q1

REPORT INFORMATION
  Report Type: 
  Country: None (occurrence: None)
  Receive Date: 20110329
  Receipt Date: 20110322
  Transmission Date: 20110831
  Serious: Yes (Other)
  Sender: FDA-Public Use
  Company Number: NZ-ROCHE-767447

PATIENT
  Sex: Male
  Weight: 87 kg

DRUGS (5)
  1. DEXAMETHASONE [Concomitant]
     Route: 048
     Dates: start: 20110201
  2. VESANOID [Suspect]
     Indication: ACUTE PROMYELOCYTIC LEUKAEMIA
     Dosage: DOSE AS REPORTED: 40 MG IN MORNING AND 50 MG IN EVENING
     Route: 048
     Dates: start: 20110131, end: 20110217
  3. OMEPRAZOLE [Concomitant]
     Indication: DYSPEPSIA
     Route: 048
     Dates: start: 20110201
  4. DEXAMETHASONE [Concomitant]
     Route: 048
  5. NILSTAT [Concomitant]
     Indication: ANTIFUNGAL PROPHYLAXIS
     Route: 048
     Dates: start: 20110201

REACTIONS (2)
  - MYOSITIS [None]
  - BLOOD CREATINE PHOSPHOKINASE INCREASED [None]
